FAERS Safety Report 16270524 (Version 2)
Quarter: 2019Q2

REPORT INFORMATION
  Report Type: Spontaneous
  Country: US (occurrence: US)
  Receive Date: 20190503
  Receipt Date: 20190513
  Transmission Date: 20190711
  Serious: No
  Sender: FDA-Public Use
  Company Number: US-AMGEN-USASP2019067137

PATIENT
  Sex: Female

DRUGS (1)
  1. PROLIA [Suspect]
     Active Substance: DENOSUMAB
     Indication: OSTEOPOROSIS POSTMENOPAUSAL
     Dosage: UNK
     Route: 065

REACTIONS (27)
  - Skin lesion [Unknown]
  - Dry eye [Unknown]
  - Malpositioned teeth [Unknown]
  - Nodule [Unknown]
  - Oropharyngeal discomfort [Unknown]
  - Dry skin [Unknown]
  - Dry mouth [Unknown]
  - Dysphonia [Unknown]
  - Abdominal distension [Unknown]
  - Back disorder [Unknown]
  - Joint contracture [Unknown]
  - Fatigue [Unknown]
  - Alopecia [Unknown]
  - Taste disorder [Unknown]
  - Decreased appetite [Unknown]
  - Ill-defined disorder [Unknown]
  - Nail disorder [Unknown]
  - Pruritus [Unknown]
  - Food intolerance [Unknown]
  - Feeling abnormal [Unknown]
  - Tooth disorder [Unknown]
  - Toothache [Unknown]
  - Weight decreased [Unknown]
  - Eructation [Unknown]
  - Condition aggravated [Unknown]
  - Dyspepsia [Unknown]
  - Malaise [Unknown]
